FAERS Safety Report 9127094 (Version 2)
Quarter: 2013Q2

REPORT INFORMATION
  Report Type: Spontaneous
  Country: US (occurrence: US)
  Receive Date: 20130228
  Receipt Date: 20130417
  Transmission Date: 20140414
  Serious: Yes (Other)
  Sender: FDA-Public Use
  Company Number: US-PFIZER INC-2013069915

PATIENT
  Age: 68 Year
  Sex: Male
  Weight: 86.17 kg

DRUGS (2)
  1. DILANTIN [Suspect]
     Indication: CONVULSION
     Dosage: 300 MG (THREE CAPSULES OF 100MG IN MORNING AND THREE CAPSULES OF 100MG IN EVENING), 2X/DAY
     Route: 048
     Dates: end: 201209
  2. DETROL LA [Concomitant]
     Dosage: 4 MG, 1X/DAY

REACTIONS (4)
  - Gait disturbance [Unknown]
  - Drug level increased [Unknown]
  - Headache [Unknown]
  - Body height decreased [Unknown]
